FAERS Safety Report 6195960-5 (Version None)
Quarter: 2009Q2

REPORT INFORMATION
  Report Type: 
  Country: None (occurrence: None)
  Receive Date: 20090520
  Receipt Date: 20090514
  Transmission Date: 20091009
  Serious: Yes (Hospitalization)
  Sender: FDA-Public Use
  Company Number: PHHY2008DE30568

PATIENT
  Sex: Male

DRUGS (1)
  1. ELIDEL [Suspect]
     Indication: ECZEMA
     Dosage: APPLIED DAILY
     Route: 061
     Dates: start: 20081001, end: 20081101

REACTIONS (2)
  - DIVERTICULITIS [None]
  - DIVERTICULUM INTESTINAL [None]
